FAERS Safety Report 6153380-3 (Version None)
Quarter: 2009Q2

REPORT INFORMATION
  Report Type: 
  Country: None (occurrence: None)
  Receive Date: 20090409
  Receipt Date: 20090409
  Transmission Date: 20091009
  Serious: Yes (Disabling)
  Sender: FDA-Public Use
  Company Number: None

PATIENT
  Sex: Female
  Weight: 82.1011 kg

DRUGS (2)
  1. CELEBREX [Suspect]
     Indication: ARTHRALGIA
     Dosage: 1 PILL DAILY
     Dates: start: 19900101
  2. LUPROINE [Suspect]

REACTIONS (2)
  - DIABETES MELLITUS [None]
  - RENAL FAILURE [None]
